FAERS Safety Report 6634938-1 (Version None)
Quarter: 2010Q1

REPORT INFORMATION
  Report Type: 
  Country: None (occurrence: None)
  Receive Date: 20100315
  Receipt Date: 20100305
  Transmission Date: 20100710
  Serious: Yes (Hospitalization)
  Sender: FDA-Public Use
  Company Number: DE-BRISTOL-MYERS SQUIBB COMPANY-14878771

PATIENT
  Age: 53 Year
  Sex: Female

DRUGS (3)
  1. CETUXIMAB [Suspect]
     Indication: NON-SMALL CELL LUNG CANCER
     Dosage: CETUXIMAB 5 MG/ML. RECENT INF-12NOV09
     Route: 042
     Dates: start: 20090902
  2. CISPLATIN [Suspect]
     Indication: NON-SMALL CELL LUNG CANCER
     Dosage: DAY 1 OF 21 DAY CYCLE. RECENT INF 05NOV09
     Route: 042
     Dates: start: 20090902
  3. VINORELBINE [Suspect]
     Indication: NON-SMALL CELL LUNG CANCER
     Dosage: DAYS 1, 8 OF 21 DAY CYCLE. RECENT INF-12NOV09
     Route: 042
     Dates: start: 20090902

REACTIONS (4)
  - COUGH [None]
  - DYSPHAGIA [None]
  - FEBRILE INFECTION [None]
  - PYREXIA [None]
